FAERS Safety Report 19001381 (Version 1)
Quarter: 2021Q1

REPORT INFORMATION
  Report Type: Spontaneous
  Country: US (occurrence: US)
  Receive Date: 20210309
  Receipt Date: 20210309
  Transmission Date: 20210420
  Serious: No
  Sender: FDA-Public Use
  Company Number: None

PATIENT
  Age: 20 Year
  Sex: Female
  Weight: 104.33 kg

DRUGS (1)
  1. THRIVE PREMIUM LIFESTYLE DFT 2.0 (DIETARY SUPPLEMENT) [Suspect]
     Active Substance: DIETARY SUPPLEMENT
     Dosage: OTHER FREQUENCY: 10 DAY(S)
     Dates: start: 20210112, end: 20210122

REACTIONS (2)
  - Application site erythema [None]
  - Application site scar [None]
